FAERS Safety Report 7125778-8 (Version None)
Quarter: 2010Q4

REPORT INFORMATION
  Report Type: 
  Country: None (occurrence: None)
  Receive Date: 20101129
  Receipt Date: 20101124
  Transmission Date: 20110411
  Serious: Yes (Life-Threatening, Hospitalization)
  Sender: FDA-Public Use
  Company Number: B0685850A

PATIENT
  Sex: Male

DRUGS (2)
  1. AUGMENTIN [Suspect]
     Indication: BRONCHITIS
     Route: 048
     Dates: start: 20100906, end: 20100906
  2. TOPLEXIL [Concomitant]
     Indication: BRONCHITIS
     Dosage: 1UNIT SINGLE DOSE
     Route: 048
     Dates: start: 20100906, end: 20100906

REACTIONS (8)
  - ANAPHYLACTIC SHOCK [None]
  - DIARRHOEA [None]
  - HYPOTENSION [None]
  - LOSS OF CONSCIOUSNESS [None]
  - PRURITUS GENERALISED [None]
  - RASH GENERALISED [None]
  - SKIN TEST POSITIVE [None]
  - TYPE I HYPERSENSITIVITY [None]
